FAERS Safety Report 4355692-2 (Version None)
Quarter: 2004Q2

REPORT INFORMATION
  Report Type: 
  Country: None (occurrence: None)
  Receive Date: 20040505
  Receipt Date: 20040426
  Transmission Date: 20050107
  Serious: Yes (Hospitalization)
  Sender: FDA-Public Use
  Company Number: K200300347

PATIENT
  Age: 53 Year
  Sex: Female

DRUGS (4)
  1. ALTACE [Suspect]
     Indication: HYPERTENSION
     Dosage: 5 MG, QD, ORAL
     Route: 048
     Dates: start: 20010123, end: 20010801
  2. HYDROCHLOROTHIAZIDE [Suspect]
     Indication: HYPERTENSION
     Dosage: 25 MG, QD, ORAL
     Route: 048
     Dates: start: 20010123, end: 20010801
  3. OXCARBAZEPINE (OXCARBAZEPINE) [Concomitant]
  4. SOTALOL HCL [Concomitant]

REACTIONS (18)
  - ANGIONEUROTIC OEDEMA [None]
  - ARTHRALGIA [None]
  - BURNING SENSATION [None]
  - CONTUSION [None]
  - DRUG INEFFECTIVE [None]
  - DRY SKIN [None]
  - EYE SWELLING [None]
  - HYPERSENSITIVITY [None]
  - LICHEN PLANUS [None]
  - NAIL DYSTROPHY [None]
  - NAIL HYPERTROPHY [None]
  - OEDEMA PERIPHERAL [None]
  - RASH [None]
  - SENSATION OF FOREIGN BODY [None]
  - SKIN DISCOLOURATION [None]
  - SKIN IRRITATION [None]
  - SWELLING FACE [None]
  - URTICARIA [None]
